FAERS Safety Report 24053475 (Version 2)
Quarter: 2024Q4

REPORT INFORMATION
  Report Type: Other
  Country: CA (occurrence: CA)
  Receive Date: 20240705
  Receipt Date: 20241129
  Transmission Date: 20250114
  Serious: Yes (Hospitalization, Other)
  Sender: APOTEX
  Company Number: CA-APOTEX-2024AP007274

PATIENT
  Age: 7 Decade
  Sex: Female

DRUGS (21)
  1. HYDROMORPHONE [Suspect]
     Active Substance: HYDROMORPHONE
     Indication: Breakthrough pain
     Dosage: 176 MILLIGRAM, QD
     Route: 048
  2. HYDROMORPHONE [Suspect]
     Active Substance: HYDROMORPHONE
     Dosage: 572 MILLIGRAM, QD
     Route: 048
  3. HYDROMORPHONE [Suspect]
     Active Substance: HYDROMORPHONE
     Dosage: 3 MILLIGRAM, TID
     Route: 048
  4. HYDROMORPHONE [Suspect]
     Active Substance: HYDROMORPHONE
     Dosage: 18 MILLIGRAM, BID
     Route: 048
  5. HYDROMORPHONE [Suspect]
     Active Substance: HYDROMORPHONE
     Dosage: 4 MILLIGRAM, TID
     Route: 048
  6. GABAPENTIN [Suspect]
     Active Substance: GABAPENTIN
     Indication: Neuralgia
     Dosage: UNK
     Route: 048
  7. FENTANYL [Suspect]
     Active Substance: FENTANYL
     Indication: Neuralgia
     Dosage: 25 MICROGRAM, Q.H.
     Route: 065
  8. FENTANYL [Suspect]
     Active Substance: FENTANYL
     Dosage: 25 MICROGRAM, Q.H.
     Route: 065
  9. FENTANYL [Suspect]
     Active Substance: FENTANYL
     Dosage: 200 MICROGRAM, Q.H.
     Route: 065
  10. FENTANYL [Suspect]
     Active Substance: FENTANYL
     Dosage: UNK
     Route: 062
  11. FENTANYL [Suspect]
     Active Substance: FENTANYL
     Dosage: 162 MICROGRAM
     Route: 065
  12. FENTANYL [Suspect]
     Active Substance: FENTANYL
     Dosage: 389 MILLIGRAM (FREQUENCY WAS 1 EVERY 72 HOURS)
     Route: 065
  13. FENTANYL [Suspect]
     Active Substance: FENTANYL
     Dosage: 200 MICROGRAM  (FREQUENCY WAS 1 EVERY 72 HOURS)
     Route: 065
  14. MORPHINE [Suspect]
     Active Substance: MORPHINE
     Indication: Surgery
     Dosage: 65 MILLIGRAM
     Route: 048
  15. MORPHINE [Suspect]
     Active Substance: MORPHINE
     Dosage: 65 MILLIGRAM, QD
     Route: 048
  16. MORPHINE [Suspect]
     Active Substance: MORPHINE
     Dosage: 30 MILLIGRAM, BID
     Route: 048
  17. MORPHINE [Suspect]
     Active Substance: MORPHINE
     Dosage: 5 MILLIGRAM, PRN
     Route: 048
  18. CANNABIDIOL\HERBALS\TETRAHYDROCANNABINOL UNSPECIFIED [Suspect]
     Active Substance: CANNABIDIOL\HERBALS\TETRAHYDROCANNABINOL UNSPECIFIED
     Indication: Pain
     Dosage: 0.5 MILLILITER, QD
     Route: 048
  19. CANNABIDIOL\HERBALS\TETRAHYDROCANNABINOL UNSPECIFIED [Suspect]
     Active Substance: CANNABIDIOL\HERBALS\TETRAHYDROCANNABINOL UNSPECIFIED
     Dosage: 10 MILLIGRAM, QD
     Route: 048
  20. CANNABIDIOL [Concomitant]
     Active Substance: CANNABIDIOL
     Indication: Product used for unknown indication
     Dosage: UNK
     Route: 065
  21. USTEKINUMAB [Concomitant]
     Active Substance: USTEKINUMAB
     Indication: Pain
     Dosage: UNK
     Route: 058

REACTIONS (11)
  - Chest discomfort [Recovering/Resolving]
  - Condition aggravated [Unknown]
  - Hot flush [Recovering/Resolving]
  - Cold sweat [Unknown]
  - Malaise [Unknown]
  - Abdominal discomfort [Unknown]
  - Withdrawal syndrome [Unknown]
  - Hyperaesthesia [Recovering/Resolving]
  - Drug withdrawal syndrome [Recovering/Resolving]
  - Anxiety [Recovering/Resolving]
  - Drug ineffective [Unknown]
